FAERS Safety Report 16750151 (Version 11)
Quarter: 2020Q4

REPORT INFORMATION
  Report Type: Spontaneous
  Country: US (occurrence: US)
  Receive Date: 20190828
  Receipt Date: 20201014
  Transmission Date: 20210113
  Serious: No
  Sender: FDA-Public Use
  Company Number: US-PFIZER INC-2019354696

PATIENT
  Age: 62 Year
  Sex: Female
  Weight: 55.79 kg

DRUGS (4)
  1. PREMARIN [Suspect]
     Active Substance: ESTROGENS, CONJUGATED
     Dosage: 1.25 MG, BID (TWICE A DAY)
     Route: 048
  2. PREMARIN [Suspect]
     Active Substance: ESTROGENS, CONJUGATED
     Dosage: TWO TABLETS A DAY
     Route: 048
  3. PREMARIN [Suspect]
     Active Substance: ESTROGENS, CONJUGATED
     Dosage: 1 TABLET, ONCE A DAY
     Route: 048
     Dates: end: 20200517
  4. PREMARIN [Suspect]
     Active Substance: ESTROGENS, CONJUGATED
     Indication: MENOPAUSAL SYMPTOMS
     Dosage: 2.5 MG (2 TABLETS OF 1.25 MG), DAILY
     Route: 048

REACTIONS (4)
  - Disturbance in attention [Unknown]
  - Feeling abnormal [Unknown]
  - Weight increased [Unknown]
  - Drug ineffective [Unknown]
